FAERS Safety Report 6077652-6 (Version None)
Quarter: 2009Q1

REPORT INFORMATION
  Report Type: 
  Country: None (occurrence: None)
  Receive Date: 20090121
  Receipt Date: 20080306
  Transmission Date: 20090719
  Serious: Yes (Hospitalization, Other)
  Sender: FDA-Public Use
  Company Number: HQWYE881110FEB04

PATIENT
  Age: 60 Year
  Sex: Female
  Weight: 66.74 kg

DRUGS (1)
  1. PREMPRO [Suspect]
     Indication: HORMONE REPLACEMENT THERAPY
     Dosage: 0.625MG/ UNSPECIFIED, ORAL
     Route: 048
     Dates: start: 19980101, end: 20020320

REACTIONS (1)
  - BREAST CANCER [None]
